FAERS Safety Report 15956744 (Version 2)
Quarter: 2019Q2

REPORT INFORMATION
  Report Type: Report from Study
  Country: GB (occurrence: GB)
  Receive Date: 20190213
  Receipt Date: 20190410
  Transmission Date: 20190711
  Serious: Yes (Hospitalization)
  Sender: FDA-Public Use
  Company Number: GB-PFIZER INC-2019057064

PATIENT
  Age: 61 Year
  Sex: Male
  Weight: 71 kg

DRUGS (6)
  1. SRA737 [Suspect]
     Active Substance: INVESTIGATIONAL PRODUCT
     Indication: SMALL CELL LUNG CANCER
     Dosage: 500 MG, [DAY -7]
     Route: 048
     Dates: start: 20190102, end: 20190102
  2. GEMCITABINE HYDROCHLORIDE. [Suspect]
     Active Substance: GEMCITABINE HYDROCHLORIDE
     Indication: SMALL CELL LUNG CANCER
     Dosage: 250 MG/M2, CYCLIC (1X/DAY ON DAYS 1, 8, AND 15 OF EACH 28-DAY CYCLE)
     Route: 042
     Dates: start: 20190108
  3. SRA737 [Suspect]
     Active Substance: INVESTIGATIONAL PRODUCT
     Dosage: 500 MG, CYCLIC (ON DAYS 2,3,9,10,16 AND 17 OF EACH 28 DAY CYCLE)
     Route: 048
     Dates: start: 20190109
  4. CO-AMOXICLAV [AMOXICILLIN;CLAVULANATE POTASSIUM] [Concomitant]
     Active Substance: AMOXICILLIN\CLAVULANATE POTASSIUM
  5. TAMSULOSIN [Concomitant]
     Active Substance: TAMSULOSIN
  6. COCODAMOL [Concomitant]
     Active Substance: ACETAMINOPHEN\CODEINE PHOSPHATE

REACTIONS (1)
  - Urinary tract infection [Recovered/Resolved]

NARRATIVE: CASE EVENT DATE: 20190124
